FAERS Safety Report 10102905 (Version 1)
Quarter: 2014Q2

REPORT INFORMATION
  Report Type: Spontaneous
  Country: FR (occurrence: FR)
  Receive Date: 20140424
  Receipt Date: 20140424
  Transmission Date: 20141212
  Serious: Yes (Hospitalization, Other)
  Sender: FDA-Public Use
  Company Number: FR-PFIZER INC-2014109874

PATIENT
  Age: 62 Year
  Sex: Male

DRUGS (11)
  1. ZYVOXID [Suspect]
     Indication: STAPHYLOCOCCAL INFECTION
     Dosage: 1.2 G, DAILY
     Route: 048
     Dates: start: 20140114, end: 20140211
  2. FUCIDINE [Suspect]
     Indication: STAPHYLOCOCCAL INFECTION
     Dosage: 1.5 G, DAILY
     Route: 048
     Dates: start: 20140114, end: 20140211
  3. KARDEGIC [Concomitant]
     Dosage: 75 MG, 1X/DAY
     Route: 048
  4. SPECIAFOLDINE [Concomitant]
     Dosage: 2 DF, DAILY
     Route: 048
  5. INEXIUM /01479302/ [Concomitant]
     Dosage: 80 MG, DAILY
     Route: 048
  6. XATRAL LP [Concomitant]
     Dosage: 10 MG, 1X/DAY
     Route: 048
  7. DIFFU-K [Concomitant]
     Dosage: 1.8 G, DAILY
     Route: 048
  8. TARDYFERON [Concomitant]
     Dosage: 3 DF, DAILY
     Route: 048
     Dates: start: 20140116
  9. ECONAZOLE [Concomitant]
     Route: 061
  10. VANCOMYCIN [Concomitant]
     Indication: STAPHYLOCOCCAL INFECTION
     Dosage: UNK
     Dates: start: 20131229, end: 20140108
  11. RIFAMPICIN [Concomitant]
     Indication: STAPHYLOCOCCAL INFECTION
     Dosage: UNK
     Dates: start: 20131229, end: 20140103

REACTIONS (4)
  - Anaemia [Recovered/Resolved]
  - Thrombocytopenia [Recovered/Resolved]
  - Respiratory distress [Recovered/Resolved]
  - Pseudomonas infection [Recovered/Resolved]
